FAERS Safety Report 9146664 (Version 1)
Quarter: 2013Q1

REPORT INFORMATION
  Report Type: Spontaneous
  Country: US (occurrence: None)
  Receive Date: 20130228
  Receipt Date: 20130228
  Transmission Date: 20140127
  Serious: Yes (Life-Threatening, Hospitalization)
  Sender: FDA-Public Use
  Company Number: None

PATIENT
  Age: 37 Year
  Sex: Female
  Weight: 91.17 kg

DRUGS (1)
  1. SPRINTEC [Suspect]
     Indication: UTERINE HAEMORRHAGE
     Route: 048
     Dates: start: 20121126, end: 20130218

REACTIONS (2)
  - Product substitution issue [None]
  - Cerebrovascular accident [None]
